FAERS Safety Report 5126161-7 (Version None)
Quarter: 2006Q3

REPORT INFORMATION
  Report Type: 
  Country: None (occurrence: None)
  Receive Date: 20060823
  Receipt Date: 20051021
  Transmission Date: 20061208
  Serious: Yes (Hospitalization, Other)
  Sender: FDA-Public Use
  Company Number: 2005104390

PATIENT
  Age: 41 Year
  Sex: Male
  Weight: 102.0593 kg

DRUGS (6)
  1. NORVASC [Suspect]
     Indication: HYPERTENSION
     Dosage: 10 MG (10 MG, 1 IN 1 D), ORAL
     Route: 048
     Dates: start: 20020101
  2. QUINAPRIL HCL [Suspect]
     Indication: HYPERTENSION
     Dosage: 40 MG (40 MG, 1 IN 1 D), ORAL
     Route: 048
     Dates: start: 20020101
  3. DEPAKOTE [Concomitant]
  4. LEXAPRO [Concomitant]
  5. RISPERDAL [Concomitant]
  6. LIPITOR [Concomitant]

REACTIONS (2)
  - DRUG INEFFECTIVE [None]
  - HYPERTENSION [None]
